FAERS Safety Report 16930102 (Version 2)
Quarter: 2019Q4

REPORT INFORMATION
  Report Type: Spontaneous
  Country: US (occurrence: US)
  Receive Date: 20191017
  Receipt Date: 20191017
  Transmission Date: 20200122
  Serious: Yes (Death)
  Sender: FDA-Public Use
  Company Number: US-PFIZER INC-2019440042

PATIENT
  Age: 80 Year
  Sex: Male

DRUGS (2)
  1. GEMCITABINE HYDROCHLORIDE. [Suspect]
     Active Substance: GEMCITABINE HYDROCHLORIDE
     Indication: METASTATIC SQUAMOUS CELL CARCINOMA
     Dosage: UNK, CYCLIC (2 CYCLES)
  2. CARBOPLATIN. [Suspect]
     Active Substance: CARBOPLATIN
     Indication: METASTATIC SQUAMOUS CELL CARCINOMA
     Dosage: UNK, CYCLIC (2 CYCLES)

REACTIONS (6)
  - Respiratory failure [Fatal]
  - Drug intolerance [Fatal]
  - Pancytopenia [Fatal]
  - Renal failure [Fatal]
  - General physical health deterioration [Fatal]
  - Bone marrow failure [Fatal]
